FAERS Safety Report 8859251 (Version 1)
Quarter: 2012Q4

REPORT INFORMATION
  Report Type: 
  Country: NL (occurrence: NL)
  Receive Date: 20121024
  Receipt Date: 20121024
  Transmission Date: 20130627
  Serious: Yes (Hospitalization)
  Sender: FDA-Public Use
  Company Number: NL-PFIZER INC-2012260522

PATIENT
  Age: 58 Year
  Sex: Male
  Weight: 73.5 kg

DRUGS (5)
  1. SOMATROPIN [Suspect]
     Indication: GROWTH HORMONE DEFICIENCY
     Dosage: 0.4 mg, 1x/day (7/week)
     Route: 058
     Dates: start: 20051027
  2. HYDROCORTISONE [Concomitant]
     Indication: BLOOD CORTICOTROPHIN DECREASED
     Dosage: UNK
     Dates: start: 20030909
  3. LEVOTHYROXINE [Concomitant]
     Indication: BLOOD THYROID STIMULATING HORMONE DECREASED
     Dosage: UNK
     Dates: start: 20030909
  4. TESTOSTERONE [Concomitant]
     Indication: BLOOD LUTEINISING HORMONE DECREASED
     Dosage: UNK
     Dates: start: 20030909
  5. TESTOSTERONE [Concomitant]
     Indication: BLOOD FOLLICLE STIMULATING HORMONE DECREASED

REACTIONS (1)
  - Hypothalamo-pituitary disorder [Unknown]
